FAERS Safety Report 10009762 (Version 2)
Quarter: 2014Q1

REPORT INFORMATION
  Report Type: Spontaneous
  Country: US (occurrence: US)
  Receive Date: 20140312
  Receipt Date: 20140312
  Transmission Date: 20141002
  Serious: No
  Sender: FDA-Public Use
  Company Number: US-INCYTE CORPORATION-2013IN000026

PATIENT
  Age: 74 Year
  Sex: Female

DRUGS (1)
  1. JAKAFI [Suspect]
     Indication: MYELOFIBROSIS
     Dosage: 15 MG, QD
     Route: 048
     Dates: start: 20121214, end: 20130206

REACTIONS (3)
  - Bone pain [Unknown]
  - Vessel puncture site bruise [Unknown]
  - Blood count abnormal [Unknown]
